FAERS Safety Report 14372037 (Version 3)
Quarter: 2018Q1

REPORT INFORMATION
  Report Type: Spontaneous
  Country: NO (occurrence: NO)
  Receive Date: 20180110
  Receipt Date: 20180321
  Transmission Date: 20180509
  Serious: Yes (Other)
  Sender: FDA-Public Use
  Company Number: NO-PFIZER INC-2018008381

PATIENT
  Age: 78 Year
  Sex: Female

DRUGS (6)
  1. NEURONTIN [Suspect]
     Active Substance: GABAPENTIN
  2. TRAMADOL. [Suspect]
     Active Substance: TRAMADOL
  3. CANDESARTAN KRKA [Suspect]
     Active Substance: CANDESARTAN
  4. NOBLIGAN [Suspect]
     Active Substance: TRAMADOL HYDROCHLORIDE
  5. VALTREX [Suspect]
     Active Substance: VALACYCLOVIR HYDROCHLORIDE
  6. BACTRIM [Suspect]
     Active Substance: SULFAMETHOXAZOLE\TRIMETHOPRIM

REACTIONS (6)
  - Acute kidney injury [Recovering/Resolving]
  - Ataxia [Recovering/Resolving]
  - Myoclonus [Recovering/Resolving]
  - Confusional state [Recovered/Resolved with Sequelae]
  - Facial paresis [Recovering/Resolving]
  - Dysarthria [Recovering/Resolving]
